FAERS Safety Report 16896550 (Version 1)
Quarter: 2019Q4

REPORT INFORMATION
  Report Type: Spontaneous
  Country: US (occurrence: US)
  Receive Date: 20191008
  Receipt Date: 20191008
  Transmission Date: 20200122
  Serious: No
  Sender: FDA-Public Use
  Company Number: US-TARO-2018TAR00639

PATIENT
  Sex: Female

DRUGS (1)
  1. HYDROCORTISONE VALERATE OINTMENT 0.2% [Suspect]
     Active Substance: HYDROCORTISONE VALERATE
     Route: 061

REACTIONS (3)
  - Rash erythematous [Unknown]
  - Pustule [Unknown]
  - Pruritus [Unknown]
